FAERS Safety Report 10684672 (Version 1)
Quarter: 2014Q4

REPORT INFORMATION
  Report Type: Spontaneous
  Country: US (occurrence: None)
  Receive Date: 20141230
  Receipt Date: 20141230
  Transmission Date: 20150529
  Serious: Yes (Disabling, Other)
  Sender: FDA-Public Use
  Company Number: None

PATIENT
  Age: 49 Year
  Sex: Female
  Weight: 58.97 kg

DRUGS (1)
  1. LEVAQUIN [Suspect]
     Active Substance: LEVOFLOXACIN
     Indication: SINUSITIS
     Dosage: 1 TABLET  ONCE DAILY  TAKEN BY MOUTH
     Route: 048

REACTIONS (5)
  - Dyskinesia [None]
  - Pain in extremity [None]
  - Activities of daily living impaired [None]
  - Tremor [None]
  - Mobility decreased [None]

NARRATIVE: CASE EVENT DATE: 20140708
